FAERS Safety Report 20452591 (Version 4)
Quarter: 2022Q2

REPORT INFORMATION
  Report Type: Report from Study
  Country: JP (occurrence: JP)
  Receive Date: 20220210
  Receipt Date: 20220418
  Transmission Date: 20220720
  Serious: Yes (Hospitalization, Other)
  Sender: FDA-Public Use
  Company Number: JP-BRISTOL-MYERS SQUIBB COMPANY-BMS-2022-016688

PATIENT
  Age: 72 Year
  Sex: Male
  Weight: 37.1 kg

DRUGS (8)
  1. IPILIMUMAB [Suspect]
     Active Substance: IPILIMUMAB
     Indication: Non-small cell lung cancer recurrent
     Dosage: UNK UNK, ONE TIME DOSE
     Route: 041
     Dates: start: 20210630, end: 20210630
  2. IPILIMUMAB [Suspect]
     Active Substance: IPILIMUMAB
     Dosage: UNK UNK, ONE TIME DOSE
     Route: 041
     Dates: start: 20211228, end: 20211228
  3. NIVOLUMAB [Suspect]
     Active Substance: NIVOLUMAB
     Indication: Non-small cell lung cancer recurrent
     Dosage: UNK UNK, ONE TIME DOSE
     Route: 041
     Dates: start: 20210630, end: 20210630
  4. NIVOLUMAB [Suspect]
     Active Substance: NIVOLUMAB
     Dosage: UNK UNK, ONE TIME DOSE
     Route: 041
     Dates: start: 20220118, end: 20220118
  5. CARBOPLATIN [Suspect]
     Active Substance: CARBOPLATIN
     Indication: Non-small cell lung cancer recurrent
     Dosage: UNK UNK, ONE TIME DOSE
     Route: 065
     Dates: start: 20210630, end: 20210630
  6. CARBOPLATIN [Suspect]
     Active Substance: CARBOPLATIN
     Dosage: UNK UNK, ONE TIME DOSE
     Route: 065
     Dates: start: 20210830, end: 20210830
  7. PEMETREXED [Suspect]
     Active Substance: PEMETREXED
     Indication: Non-small cell lung cancer recurrent
     Dosage: UNK UNK, ONE TIME DOSE
     Route: 065
     Dates: start: 20210630, end: 20210630
  8. PEMETREXED [Suspect]
     Active Substance: PEMETREXED
     Dosage: UNK UNK, ONE TIME DOSE
     Route: 065
     Dates: start: 20210830, end: 20210830

REACTIONS (1)
  - Gastric ulcer haemorrhage [Recovering/Resolving]

NARRATIVE: CASE EVENT DATE: 20210717
